FAERS Safety Report 9376746 (Version 2)
Quarter: 2013Q3

REPORT INFORMATION
  Report Type: Report from Study
  Country: US (occurrence: US)
  Receive Date: 20130701
  Receipt Date: 20130725
  Transmission Date: 20140515
  Serious: Yes (Other)
  Sender: FDA-Public Use
  Company Number: US-BIOGENIDEC-2013BI055843

PATIENT
  Age: 48 Year
  Sex: Female
  Weight: 54 kg

DRUGS (8)
  1. BG00012 [Suspect]
     Indication: MULTIPLE SCLEROSIS
     Route: 048
     Dates: start: 20110105, end: 20130624
  2. OXYBUTYNIN CHLORIDE [Concomitant]
     Indication: URINARY INCONTINENCE
     Route: 048
     Dates: start: 1998
  3. NITROFURANTOIN MACROCRYSTAL [Concomitant]
     Indication: URINARY INCONTINENCE
     Route: 048
     Dates: start: 1998
  4. ZANAFLEX [Concomitant]
     Indication: MUSCLE SPASMS
     Route: 048
     Dates: start: 1998
  5. CLONAZEPAM [Concomitant]
     Indication: MUSCLE SPASMS
     Route: 048
     Dates: start: 1998
  6. YASMIN [Concomitant]
     Indication: CONTRACEPTION
     Route: 048
     Dates: start: 2007
  7. COMPAZINE [Concomitant]
     Indication: NAUSEA
     Route: 048
     Dates: start: 20090304
  8. ALLEGRA-D [Concomitant]
     Indication: MULTIPLE ALLERGIES
     Route: 048
     Dates: start: 20090913

REACTIONS (1)
  - Chronic myeloid leukaemia [Not Recovered/Not Resolved]
